FAERS Safety Report 18323777 (Version 1)
Quarter: 2020Q3

REPORT INFORMATION
  Report Type: Spontaneous
  Country: CN (occurrence: CN)
  Receive Date: 20200928
  Receipt Date: 20200928
  Transmission Date: 20201103
  Serious: Yes (Other)
  Sender: FDA-Public Use
  Company Number: CN-PFIZER INC-2020373077

PATIENT
  Age: 34 Year
  Sex: Female
  Weight: 43 kg

DRUGS (3)
  1. METHOTREXATE. [Suspect]
     Active Substance: METHOTREXATE
     Indication: LEUKAEMIA
     Dosage: 4.2 G
     Route: 041
     Dates: start: 20200903
  2. SODIUM CHLORIDE 0.9% [Concomitant]
     Active Substance: SODIUM CHLORIDE
     Indication: LEUKAEMIA
     Dosage: 500 ML, WEEKLY
     Route: 041
     Dates: start: 20200903, end: 20200904
  3. METHOTREXATE. [Suspect]
     Active Substance: METHOTREXATE
     Dosage: 3.8 G, WEEKLY
     Route: 041
     Dates: end: 20200907

REACTIONS (2)
  - Drug eruption [Recovering/Resolving]
  - Gastrointestinal disorder [Recovering/Resolving]

NARRATIVE: CASE EVENT DATE: 20200907
